FAERS Safety Report 13101192 (Version 2)
Quarter: 2019Q4

REPORT INFORMATION
  Report Type: Spontaneous
  Country: US (occurrence: US)
  Receive Date: 20170110
  Receipt Date: 20191021
  Transmission Date: 20200122
  Serious: Yes (Other)
  Sender: FDA-Public Use
  Company Number: US-TEVA-727398USA

PATIENT
  Sex: Female

DRUGS (1)
  1. NEXT CHOICE [Suspect]
     Active Substance: LEVONORGESTREL
     Route: 065
     Dates: start: 20161215, end: 20161215

REACTIONS (4)
  - Maternal exposure during pregnancy [Unknown]
  - Back pain [Not Recovered/Not Resolved]
  - Abortion spontaneous [Recovered/Resolved]
  - Metrorrhagia [Unknown]

NARRATIVE: CASE EVENT DATE: 20161215
